FAERS Safety Report 16438747 (Version 2)
Quarter: 2021Q1

REPORT INFORMATION
  Report Type: Report from Study
  Country: JP (occurrence: JP)
  Receive Date: 20190617
  Receipt Date: 20210223
  Transmission Date: 20210419
  Serious: Yes (Other)
  Sender: FDA-Public Use
  Company Number: JP-UCBSA-2019021375

PATIENT

DRUGS (1)
  1. LACOSAMIDE. [Suspect]
     Active Substance: LACOSAMIDE
     Indication: EPILEPSY
     Dosage: 50?100 MILLIGRAMS PER DAY

REACTIONS (9)
  - Headache [Recovered/Resolved]
  - Irritability [Recovered/Resolved]
  - Seizure [Recovered/Resolved]
  - Disease complication [Unknown]
  - Psychogenic seizure [Recovered/Resolved]
  - Dizziness [Recovered/Resolved]
  - Nausea [Recovered/Resolved]
  - Rash [Recovering/Resolving]
  - Drug ineffective [Unknown]
